FAERS Safety Report 8059689-0 (Version None)
Quarter: 2012Q1

REPORT INFORMATION
  Report Type: 
  Country: None (occurrence: None)
  Receive Date: 20120120
  Receipt Date: 20120111
  Transmission Date: 20120608
  Serious: Yes (Other)
  Sender: FDA-Public Use
  Company Number: PHFR2012GB000603

PATIENT
  Sex: Female

DRUGS (2)
  1. VALPROATE SODIUM [Concomitant]
     Dosage: UNK UKN, UNK
  2. CLOZARIL [Suspect]
     Indication: SCHIZOPHRENIA
     Dosage: 50 MG MORNING AND 300 MG AT NIGHT
     Route: 048
     Dates: start: 20100705

REACTIONS (6)
  - NON-CARDIAC CHEST PAIN [None]
  - HEART RATE INCREASED [None]
  - REFLUX GASTRITIS [None]
  - ELECTROCARDIOGRAM QT PROLONGED [None]
  - ANTIPSYCHOTIC DRUG LEVEL INCREASED [None]
  - OBESITY [None]
